FAERS Safety Report 21950873 (Version 2)
Quarter: 2023Q1

REPORT INFORMATION
  Report Type: Spontaneous
  Country: JP (occurrence: JP)
  Receive Date: 20230203
  Receipt Date: 20230223
  Transmission Date: 20230417
  Serious: No
  Sender: FDA-Public Use
  Company Number: JP-PFIZER INC-PV202300020340

PATIENT
  Age: 61 Year
  Sex: Male
  Weight: 55 kg

DRUGS (14)
  1. PAXLOVID [Suspect]
     Active Substance: NIRMATRELVIR\RITONAVIR
     Indication: COVID-19 treatment
     Dosage: [PF-07321332 300 MG]/[RITONAVIR 100 MG]; 2X/DAY
     Route: 048
     Dates: start: 20220407, end: 20220407
  2. CYMBALTA [Concomitant]
     Active Substance: DULOXETINE HYDROCHLORIDE
     Dosage: 20MG 2C X ONCE
     Route: 048
     Dates: start: 20220406
  3. NEXIUM [Concomitant]
     Active Substance: ESOMEPRAZOLE MAGNESIUM
     Dosage: 20MG 1C X ONCE
     Route: 048
     Dates: start: 20220406
  4. TRAMADOL [Concomitant]
     Active Substance: TRAMADOL
     Dosage: 25MG 4T XN. VDS
     Route: 048
     Dates: start: 20220406
  5. URSO [Concomitant]
     Active Substance: URSODIOL
     Dosage: 100MG 6T X 3 TIMES
     Route: 048
     Dates: start: 20220406, end: 20220414
  6. AMLODIPINE [Concomitant]
     Active Substance: AMLODIPINE BESYLATE
     Dosage: 5MG 0.5TX 1 TIME
     Route: 048
     Dates: start: 20220406
  7. OLOPATADINE [Concomitant]
     Active Substance: OLOPATADINE
     Dosage: 5MG 2T X TWICE
     Route: 048
     Dates: start: 20220406
  8. SULFAMETHOXAZOLE\TRIMETHOPRIM [Concomitant]
     Active Substance: SULFAMETHOXAZOLE\TRIMETHOPRIM
     Dosage: 0.1G X ONCE
     Route: 048
     Dates: start: 20220406
  9. PIPERACILLIN SODIUM\TAZOBACTAM SODIUM [Concomitant]
     Active Substance: PIPERACILLIN SODIUM\TAZOBACTAM SODIUM
     Dosage: 4.5G (ONCE) X 3 TIMES
     Route: 042
     Dates: start: 20220406, end: 20220418
  10. HEPARIN CALCIUM [Concomitant]
     Active Substance: HEPARIN CALCIUM
     Dosage: 5000U (ONCE) X TWICE
     Route: 058
     Dates: start: 20220407, end: 20220418
  11. FILGRASTIM [Concomitant]
     Active Substance: FILGRASTIM
     Dosage: 75MG X 1 TIME
     Route: 058
     Dates: start: 20220407, end: 20220410
  12. MICAFUNGIN [Concomitant]
     Active Substance: MICAFUNGIN
     Dosage: 150MG X ONCE
     Route: 042
     Dates: start: 20220407, end: 20220414
  13. SOTROVIMAB [Concomitant]
     Active Substance: SOTROVIMAB
     Dosage: 500MG X ONCE
     Route: 042
     Dates: start: 20220406, end: 20220406
  14. VEKLURY [Concomitant]
     Active Substance: REMDESIVIR
     Dosage: UNK
     Route: 042
     Dates: start: 20220407, end: 20220411

REACTIONS (1)
  - Incorrect product administration duration [Unknown]
